FAERS Safety Report 7236643-X (Version None)
Quarter: 2011Q1

REPORT INFORMATION
  Report Type: 
  Country: None (occurrence: None)
  Receive Date: 20110120
  Receipt Date: 20110110
  Transmission Date: 20110831
  Serious: No
  Sender: FDA-Public Use
  Company Number: US-B.I. PHARMACEUTICALS,INC./RIDGEFIELD-2011-BP-00315BP

PATIENT
  Sex: Male

DRUGS (11)
  1. PRADAXA [Suspect]
     Indication: ATRIAL FIBRILLATION
     Dosage: 300 MG
     Route: 048
     Dates: start: 20101223
  2. ASPIRIN [Concomitant]
     Indication: ISCHAEMIC HEART DISEASE PROPHYLAXIS
     Dosage: 81 MG
     Route: 048
  3. DIGOXIN [Concomitant]
     Indication: ATRIAL FIBRILLATION
     Dosage: 0.125 MG
     Route: 048
  4. FLUOXETINE [Concomitant]
     Indication: MOOD DISORDER DUE TO A GENERAL MEDICAL CONDITION
     Dosage: 20 MG
     Route: 048
  5. CRESTOR [Concomitant]
     Indication: BLOOD CHOLESTEROL INCREASED
     Dosage: 40 MG
     Route: 048
  6. FUROSEMIDE [Concomitant]
     Indication: FLUID RETENTION
     Route: 048
  7. MULTIVITAMIN [Concomitant]
     Route: 048
  8. AVODART [Concomitant]
     Indication: BENIGN PROSTATIC HYPERPLASIA
     Dosage: 0.5 MG
     Route: 048
  9. COREG [Concomitant]
     Indication: CARDIAC FAILURE CONGESTIVE
     Dosage: 6.25 MG
     Route: 048
  10. RAMIPRIL [Concomitant]
     Dosage: 2.5 MG
     Route: 048
  11. POTASSIUM CHLORIDE [Concomitant]
     Dosage: 10 MEQ
     Route: 048

REACTIONS (2)
  - BLOOD URINE PRESENT [None]
  - HEADACHE [None]
